FAERS Safety Report 24425237 (Version 2)
Quarter: 2024Q4

REPORT INFORMATION
  Report Type: Spontaneous
  Country: DE (occurrence: DE)
  Receive Date: 20241010
  Receipt Date: 20241112
  Transmission Date: 20250114
  Serious: Yes (Hospitalization, Other)
  Sender: AMGEN
  Company Number: DE-GLAXOSMITHKLINE-DE2024EME116758

PATIENT
  Age: 17 Year
  Sex: Female
  Weight: 63 kg

DRUGS (6)
  1. ETANERCEPT [Suspect]
     Active Substance: ETANERCEPT
     Indication: Arthropathy
     Dosage: 50 MG, 1X/WEEKLY
     Route: 065
  2. BENLYSTA [Suspect]
     Active Substance: BELIMUMAB
     Indication: Systemic lupus erythematosus
     Dosage: UNK
     Route: 041
  3. MYCOPHENOLATE MOFETIL [Concomitant]
     Active Substance: MYCOPHENOLATE MOFETIL
     Indication: Systemic lupus erythematosus
     Dosage: UNK
     Route: 065
  4. HYDROXYCHLOROQUINE [Concomitant]
     Active Substance: HYDROXYCHLOROQUINE
     Indication: Product used for unknown indication
     Dosage: 200 MG, 1X/DAY
     Route: 065
  5. MADELEINE [Concomitant]
     Indication: Product used for unknown indication
     Dosage: 500 MG, 1X/DAY
     Route: 065
  6. MADELEINE [Concomitant]
     Dosage: 500 MG, 2X/DAY
     Route: 065

REACTIONS (18)
  - Mixed connective tissue disease [Unknown]
  - Anaphylactic shock [Recovered/Resolved]
  - Conjunctival hyperaemia [Unknown]
  - Urticaria [Recovering/Resolving]
  - Flushing [Recovering/Resolving]
  - Blood pressure decreased [Recovering/Resolving]
  - Hypersensitivity [Recovering/Resolving]
  - Expired product administered [Unknown]
  - Drug ineffective [Unknown]
  - Blood alkaline phosphatase decreased [Unknown]
  - Lymphocyte count decreased [Unknown]
  - Mean cell haemoglobin decreased [Unknown]
  - Mean cell volume decreased [Unknown]
  - Monocyte count increased [Unknown]
  - Blood pH increased [Unknown]
  - Serum ferritin decreased [Unknown]
  - Thyroxine increased [Unknown]
  - White blood cell count increased [Unknown]

NARRATIVE: CASE EVENT DATE: 20240830
